FAERS Safety Report 11094066 (Version 1)
Quarter: 2015Q2

REPORT INFORMATION
  Report Type: Spontaneous
  Country: SE (occurrence: SE)
  Receive Date: 20150506
  Receipt Date: 20150506
  Transmission Date: 20150821
  Serious: Yes (Hospitalization)
  Sender: FDA-Public Use
  Company Number: SE-WATSON-2015-08931

PATIENT
  Age: 59 Year
  Sex: Female

DRUGS (1)
  1. STESOLID [Suspect]
     Active Substance: DIAZEPAM
     Indication: PRODUCT USED FOR UNKNOWN INDICATION
     Dosage: UNK
     Route: 065

REACTIONS (4)
  - Flushing [Unknown]
  - Headache [Unknown]
  - Confusional state [Unknown]
  - Nausea [Unknown]

NARRATIVE: CASE EVENT DATE: 20131009
